FAERS Safety Report 15686938 (Version 3)
Quarter: 2019Q1

REPORT INFORMATION
  Report Type: Spontaneous
  Country: CO (occurrence: CO)
  Receive Date: 20181204
  Receipt Date: 20190313
  Transmission Date: 20190417
  Serious: Yes (Other)
  Sender: FDA-Public Use
  Company Number: CO-AMGEN-COLSP2018173114

PATIENT
  Age: 41 Year
  Sex: Female

DRUGS (1)
  1. ENBREL [Suspect]
     Active Substance: ETANERCEPT
     Indication: ANKYLOSING SPONDYLITIS
     Dosage: 50 MILLIGRAM, QWK
     Route: 058
     Dates: start: 201802, end: 201806

REACTIONS (4)
  - Helicobacter infection [Unknown]
  - Ear infection [Unknown]
  - Urinary tract infection [Unknown]
  - Mental disorder [Unknown]

NARRATIVE: CASE EVENT DATE: 201802
